FAERS Safety Report 9054395 (Version 1)
Quarter: 2013Q1

REPORT INFORMATION
  Report Type: Spontaneous
  Country: US (occurrence: US)
  Receive Date: 20130208
  Receipt Date: 20130208
  Transmission Date: 20140127
  Serious: No
  Sender: FDA-Public Use
  Company Number: US-GLAXOSMITHKLINE-A0986587A

PATIENT
  Sex: Female

DRUGS (1)
  1. PAXIL CR [Suspect]
     Indication: PANIC DISORDER
     Dosage: 25MG PER DAY
     Route: 048
     Dates: start: 20120716, end: 20120717

REACTIONS (7)
  - Feeling cold [Unknown]
  - Hypoaesthesia [Unknown]
  - Fear [Unknown]
  - Headache [Unknown]
  - Chest pain [Unknown]
  - Drug ineffective [Unknown]
  - Product quality issue [Unknown]
